FAERS Safety Report 21751801 (Version 1)
Quarter: 2022Q4

REPORT INFORMATION
  Report Type: Spontaneous
  Country: US (occurrence: US)
  Receive Date: 20221220
  Receipt Date: 20221220
  Transmission Date: 20230113
  Serious: No
  Sender: FDA-Public Use
  Company Number: US-CELLTRION INC.-2021US017151

PATIENT

DRUGS (1)
  1. TRUXIMA [Suspect]
     Active Substance: RITUXIMAB-ABBS
     Indication: Connective tissue disorder
     Dosage: 10 MG/ML; THERAPY PLANNED IS 12/17/2021 FOR 1000 MG TWO INFUSIONS Q 6 MONTHS AND 12/31/2021 FOR 1000

REACTIONS (1)
  - Off label use [Unknown]
